FAERS Safety Report 5871277-0 (Version None)
Quarter: 2008Q3

REPORT INFORMATION
  Report Type: 
  Country: None (occurrence: None)
  Receive Date: 20080904
  Receipt Date: 20080904
  Transmission Date: 20090109
  Serious: Yes (Other)
  Sender: FDA-Public Use
  Company Number: None

PATIENT
  Sex: Male
  Weight: 39.0093 kg

DRUGS (2)
  1. RISPERDAL [Suspect]
     Indication: AGITATION
     Dosage: 0.5 (1/2 OF 1MG) 1/2 TAB TID PO
     Route: 048
     Dates: start: 20080527, end: 20080818
  2. RISPERDAL [Suspect]
     Indication: APATHY
     Dosage: 0.5 (1/2 OF 1MG) 1/2 TAB TID PO
     Route: 048
     Dates: start: 20080527, end: 20080818

REACTIONS (1)
  - THERAPEUTIC RESPONSE UNEXPECTED WITH DRUG SUBSTITUTION [None]
